FAERS Safety Report 22116695 (Version 1)
Quarter: 2023Q1

REPORT INFORMATION
  Report Type: Spontaneous
  Country: JP (occurrence: JP)
  Receive Date: 20230320
  Receipt Date: 20230320
  Transmission Date: 20230417
  Serious: Yes (Other)
  Sender: FDA-Public Use
  Company Number: JP-MSD-2303JPN001660J

PATIENT
  Age: 54 Year
  Sex: Male

DRUGS (3)
  1. KEYTRUDA [Suspect]
     Active Substance: PEMBROLIZUMAB
     Indication: Renal cell carcinoma
     Dosage: UNK
     Route: 065
  2. INLYTA [Suspect]
     Active Substance: AXITINIB
     Indication: Renal cell carcinoma
     Dosage: 8 MILLIGRAM, QD,1 X/DAY
     Route: 065
  3. INLYTA [Suspect]
     Active Substance: AXITINIB
     Dosage: 4 MILLIGRAM, QD,1 X/DAY
     Route: 065

REACTIONS (1)
  - Hypertension [Not Recovered/Not Resolved]
